FAERS Safety Report 9511305 (Version 1)
Quarter: 2013Q1

REPORT INFORMATION
  Report Type: Spontaneous
  Country: US (occurrence: None)
  Receive Date: 20130305
  Receipt Date: 20130305
  Transmission Date: 20140127
  Serious: Yes (Other)
  Sender: FDA-Public Use
  Company Number: 163-21880-12022647

PATIENT
  Age: 79 Year
  Sex: Male

DRUGS (4)
  1. REVLIMID (LENALIDOMIDE) (25 MILLIGRAM, CAPSULES) [Suspect]
     Indication: PLASMA CELL MYELOMA
     Dosage: 25 MG, QOD X 28 DAYS, PO
     Route: 048
     Dates: start: 20080917
  2. ASA (ACETYLSALICYLIC ACID) (UNKNOWN) [Concomitant]
  3. DECADRON [Concomitant]
  4. NEURONTIN (GABAPENTIN) (UNKNOWN) [Concomitant]

REACTIONS (3)
  - Neutrophil count decreased [None]
  - White blood cell disorder [None]
  - White blood cell count decreased [None]
